FAERS Safety Report 16117596 (Version 1)
Quarter: 2019Q1

REPORT INFORMATION
  Report Type: Spontaneous
  Country: FR (occurrence: FR)
  Receive Date: 20190326
  Receipt Date: 20190326
  Transmission Date: 20190418
  Serious: Yes (Hospitalization)
  Sender: FDA-Public Use
  Company Number: PHHY2019FR063209

PATIENT
  Age: 34 Year
  Sex: Female
  Weight: 57 kg

DRUGS (2)
  1. LAMOTRIGINE. [Suspect]
     Active Substance: LAMOTRIGINE
     Indication: BRIEF PSYCHOTIC DISORDER, WITH POSTPARTUM ONSET
     Dosage: 2 OT, QD
     Route: 048
     Dates: start: 20181218, end: 20190123
  2. QUETIAPINE. [Suspect]
     Active Substance: QUETIAPINE
     Indication: BRIEF PSYCHOTIC DISORDER, WITH POSTPARTUM ONSET
     Dosage: 800 MG, QD
     Route: 048
     Dates: start: 20181218, end: 20190123

REACTIONS (2)
  - Drug reaction with eosinophilia and systemic symptoms [Recovering/Resolving]
  - Product dose omission [Recovered/Resolved]

NARRATIVE: CASE EVENT DATE: 20190120
